FAERS Safety Report 15269267 (Version 2)
Quarter: 2018Q3

REPORT INFORMATION
  Report Type: Spontaneous
  Country: US (occurrence: US)
  Receive Date: 20180813
  Receipt Date: 20180905
  Transmission Date: 20181010
  Serious: No
  Sender: FDA-Public Use
  Company Number: US-ASTRAZENECA-2018SF01354

PATIENT
  Age: 61 Year
  Sex: Male
  Weight: 81.6 kg

DRUGS (3)
  1. BYDUREON [Suspect]
     Active Substance: EXENATIDE
     Indication: TYPE 2 DIABETES MELLITUS
     Dosage: 2 MG, ONCE A WEEK (BYDUREON PEN)
     Route: 058
     Dates: start: 2018
  2. BYDUREON [Suspect]
     Active Substance: EXENATIDE
     Indication: TYPE 2 DIABETES MELLITUS
     Route: 058
     Dates: start: 2007
  3. BYETTA [Suspect]
     Active Substance: EXENATIDE
     Indication: TYPE 2 DIABETES MELLITUS
     Dosage: UNKNOWN DOSE, DAILY
     Route: 058
     Dates: start: 2005, end: 2007

REACTIONS (5)
  - Frustration tolerance decreased [Recovered/Resolved]
  - Off label use [Recovered/Resolved]
  - Circumstance or information capable of leading to medication error [Not Recovered/Not Resolved]
  - Underdose [Recovered/Resolved]
  - Device malfunction [Unknown]

NARRATIVE: CASE EVENT DATE: 2005
